FAERS Safety Report 25846568 (Version 1)
Quarter: 2025Q3

REPORT INFORMATION
  Report Type: Spontaneous
  Country: GB (occurrence: GB)
  Receive Date: 20250925
  Receipt Date: 20250925
  Transmission Date: 20251021
  Serious: Yes (Disabling, Other)
  Sender: AUROBINDO
  Company Number: GB-MHRA-MED-202509180420262720-CRVTN

PATIENT
  Age: 29 Year
  Sex: Female
  Weight: 46 kg

DRUGS (1)
  1. ARIPIPRAZOLE [Suspect]
     Active Substance: ARIPIPRAZOLE
     Indication: Product used for unknown indication
     Route: 065

REACTIONS (1)
  - Dysaesthesia [Recovered/Resolved]

NARRATIVE: CASE EVENT DATE: 20250918
